FAERS Safety Report 5096564-8 (Version None)
Quarter: 2006Q3

REPORT INFORMATION
  Report Type: 
  Country: None (occurrence: None)
  Receive Date: 20060831
  Receipt Date: 20060821
  Transmission Date: 20061208
  Serious: Yes (Hospitalization, Other)
  Sender: FDA-Public Use
  Company Number: 2006101493

PATIENT
  Age: 81 Year
  Sex: Male
  Weight: 81.6475 kg

DRUGS (3)
  1. ZOLOFT [Suspect]
     Indication: ANXIETY
     Dosage: 100  MG (100 MG, 1 IN 1 D), ORAL
     Route: 048
  2. ZOLOFT [Suspect]
     Indication: DEPRESSION
     Dosage: 100  MG (100 MG, 1 IN 1 D), ORAL
     Route: 048
  3. ANTIHYPERTENSIVES (ANTIHYPERTENSIVES) [Concomitant]

REACTIONS (4)
  - CEREBROVASCULAR ACCIDENT [None]
  - HEADACHE [None]
  - PARAESTHESIA [None]
  - PARKINSON'S DISEASE [None]
